FAERS Safety Report 9938654 (Version 3)
Quarter: 2014Q2

REPORT INFORMATION
  Report Type: Spontaneous
  Country: GP (occurrence: FR)
  Receive Date: 20140303
  Receipt Date: 20140414
  Transmission Date: 20141212
  Serious: Yes (Other)
  Sender: FDA-Public Use
  Company Number: GP-JNJFOC-20140216111

PATIENT
  Age: 78 Year
  Sex: Female

DRUGS (4)
  1. XARELTO [Suspect]
     Indication: CEREBROVASCULAR ACCIDENT PROPHYLAXIS
     Route: 048
     Dates: start: 201309, end: 20140207
  2. XARELTO [Suspect]
     Indication: ATRIAL FIBRILLATION
     Route: 048
     Dates: start: 201309, end: 20140207
  3. NACL [Concomitant]
     Route: 042
     Dates: start: 20140205, end: 20140209
  4. TAREG [Concomitant]
     Indication: HYPERTENSION
     Route: 048
     Dates: start: 20140205

REACTIONS (3)
  - Creatinine renal clearance decreased [Unknown]
  - Renal impairment [Unknown]
  - Renal failure [Unknown]
